FAERS Safety Report 5290077-6 (Version None)
Quarter: 2007Q1

REPORT INFORMATION
  Report Type: 
  Country: None (occurrence: None)
  Receive Date: 20070330
  Receipt Date: 20070322
  Transmission Date: 20070707
  Serious: Yes (Other)
  Sender: FDA-Public Use
  Company Number: 2007BL000924

PATIENT
  Age: 35 Year
  Sex: Male

DRUGS (3)
  1. PREDNISOLONE SODIUM PHOSPHATE [Suspect]
     Indication: RENAL TRANSPLANT
     Dosage: 10 MILLIGRAMS;CYCLICAL
  2. AZATHIOPRINE [Suspect]
     Indication: RENAL TRANSPLANT
     Dosage: 100 MILLIGRAMS;DAILY
  3. CYCLOSPORINE [Suspect]
     Indication: RENAL TRANSPLANT
     Dosage: 125 MILLIGRAMS;TWICE A DAY

REACTIONS (5)
  - COMPLICATIONS OF TRANSPLANT SURGERY [None]
  - EPSTEIN-BARR VIRUS INFECTION [None]
  - HISTOLOGY ABNORMAL [None]
  - LYMPHOPROLIFERATIVE DISORDER [None]
  - SKIN LESION [None]
